FAERS Safety Report 4359531-5 (Version None)
Quarter: 2004Q2

REPORT INFORMATION
  Report Type: 
  Country: None (occurrence: None)
  Receive Date: 20040512
  Receipt Date: 20040506
  Transmission Date: 20050107
  Serious: Yes (Other)
  Sender: FDA-Public Use
  Company Number: 200411013BCC

PATIENT
  Age: 84 Year
  Sex: Male
  Weight: 68.9467 kg

DRUGS (15)
  1. ALEVE [Suspect]
     Indication: ARTHRITIS
     Dosage: 220 MG, BID, ORAL
     Route: 048
     Dates: start: 19990101, end: 20040301
  2. ASPIRIN [Suspect]
     Dates: end: 20040301
  3. GLUCOPHAGE [Concomitant]
  4. TERAZOSIN HCL [Concomitant]
  5. LASIX [Concomitant]
  6. ACCUPRIL [Concomitant]
  7. CORDARONE [Concomitant]
  8. FERROUS SULFATE TAB [Concomitant]
  9. ATENOLOL [Concomitant]
  10. MULTIVITAMIN [Concomitant]
  11. FOLIC ACID [Concomitant]
  12. VITAMIN E [Concomitant]
  13. ZINC [Concomitant]
  14. PREVACID [Concomitant]
  15. TPN [Concomitant]

REACTIONS (2)
  - FAECAL OCCULT BLOOD POSITIVE [None]
  - INTESTINAL POLYP [None]
